FAERS Safety Report 16506845 (Version 1)
Quarter: 2019Q3

REPORT INFORMATION
  Report Type: Spontaneous
  Country: CN (occurrence: CN)
  Receive Date: 20190701
  Receipt Date: 20190701
  Transmission Date: 20191004
  Serious: Yes (Other)
  Sender: FDA-Public Use
  Company Number: CN-BAXTER-2019BAX012805

PATIENT
  Age: 61 Year
  Sex: Female
  Weight: 66 kg

DRUGS (4)
  1. ENDOXAN [Suspect]
     Active Substance: CYCLOPHOSPHAMIDE
     Indication: BREAST CANCER FEMALE
     Dosage: 0.9% NS 50 ML + CYCLOPHOSPHAMIDE FOR INJECTION 0.9 GRAM
     Route: 041
     Dates: start: 20190531, end: 20190531
  2. 0.9% SODIUM CHLORIDE INJECTION [Suspect]
     Active Substance: SODIUM CHLORIDE
     Dosage: DOCETAXEL INJECTION 120 MG + 0.9% SODIUM CHLORIDE INJECTION 250 ML
     Route: 041
     Dates: start: 20190531, end: 20190531
  3. 0.9% SODIUM CHLORIDE INJECTION [Suspect]
     Active Substance: SODIUM CHLORIDE
     Indication: MEDICATION DILUTION
     Dosage: 0.9% NS 50 ML + CYCLOPHOSPHAMIDE FOR INJECTION 0.9 GRAM
     Route: 041
     Dates: start: 20190531, end: 20190531
  4. AISU [Suspect]
     Active Substance: DOCETAXEL
     Indication: BREAST CANCER FEMALE
     Dosage: DOCETAXEL INJECTION 120 MG + 0.9% SODIUM CHLORIDE INJECTION 250 ML
     Route: 041
     Dates: start: 20190531, end: 20190531

REACTIONS (1)
  - Bone marrow failure [Recovered/Resolved]

NARRATIVE: CASE EVENT DATE: 20190607
